FAERS Safety Report 7904709-4 (Version None)
Quarter: 2011Q4

REPORT INFORMATION
  Report Type: 
  Country: None (occurrence: None)
  Receive Date: 20111109
  Receipt Date: 20111031
  Transmission Date: 20120403
  Serious: Yes (Other)
  Sender: FDA-Public Use
  Company Number: NO-GLAXOSMITHKLINE-B0761273A

PATIENT
  Sex: Male

DRUGS (2)
  1. LAMICTAL [Suspect]
     Indication: DEPRESSION
     Dosage: 200MG PER DAY
     Route: 065
     Dates: start: 20110101
  2. WELLBUTRIN RETARD [Suspect]
     Indication: DEPRESSION
     Dosage: 150MG PER DAY
     Route: 065
     Dates: start: 20110101

REACTIONS (2)
  - AGGRESSION [None]
  - TIC [None]
